FAERS Safety Report 6184047-3 (Version None)
Quarter: 2009Q2

REPORT INFORMATION
  Report Type: 
  Country: None (occurrence: None)
  Receive Date: 20090506
  Receipt Date: 20090506
  Transmission Date: 20091009
  Serious: Yes (Death)
  Sender: FDA-Public Use
  Company Number: None

PATIENT
  Sex: Male
  Weight: 71.2 kg

DRUGS (4)
  1. REVLIMID [Suspect]
  2. VELCADE [Suspect]
  3. DEXAMETHESONE [Concomitant]
  4. DOXIL [Concomitant]

REACTIONS (15)
  - BACTERAEMIA [None]
  - CATHETER SITE HAEMORRHAGE [None]
  - DIALYSIS [None]
  - HAEMODIALYSIS [None]
  - HAEMORRHAGIC DIATHESIS [None]
  - HYPERCALCAEMIA [None]
  - HYPERVISCOSITY SYNDROME [None]
  - PAIN [None]
  - PLATELET DISORDER [None]
  - PNEUMONITIS [None]
  - RENAL FAILURE ACUTE [None]
  - SCROTAL HAEMATOMA [None]
  - SPINAL COMPRESSION FRACTURE [None]
  - TUMOUR LYSIS SYNDROME [None]
  - VERTEBRAL WEDGING [None]
